FAERS Safety Report 24110389 (Version 1)
Quarter: 2024Q3

REPORT INFORMATION
  Report Type: Report from Study
  Country: GB (occurrence: GB)
  Receive Date: 20240718
  Receipt Date: 20240718
  Transmission Date: 20241017
  Serious: Yes (Other)
  Sender: NOVARTIS
  Company Number: GB-002147023-NVSC2024GB125485

PATIENT
  Sex: Female

DRUGS (1)
  1. KESIMPTA [Suspect]
     Active Substance: OFATUMUMAB
     Indication: Relapsing-remitting multiple sclerosis
     Dosage: 20 MG, QMO
     Route: 058
     Dates: start: 20230629

REACTIONS (8)
  - Multiple sclerosis [Recovered/Resolved]
  - Neuralgia [Recovered/Resolved]
  - Influenza [Recovering/Resolving]
  - Headache [Unknown]
  - Fatigue [Recovered/Resolved]
  - Pyrexia [Unknown]
  - Neuralgia [Recovered/Resolved]
  - Malaise [Unknown]

NARRATIVE: CASE EVENT DATE: 20240707
